FAERS Safety Report 7374088-2 (Version None)
Quarter: 2011Q1

REPORT INFORMATION
  Report Type: 
  Country: None (occurrence: None)
  Receive Date: 20110315
  Receipt Date: 20110303
  Transmission Date: 20110831
  Serious: Yes (Death, Life-Threatening)
  Sender: FDA-Public Use
  Company Number: 2011045503

PATIENT
  Age: 65 Year
  Sex: Male

DRUGS (8)
  1. DALTEPARIN SODIUM [Suspect]
     Indication: LUNG NEOPLASM MALIGNANT
     Dates: start: 20101220, end: 20110225
  2. DEXAMETHASONE [Suspect]
     Dosage: 4 MG, ORAL
     Route: 048
     Dates: end: 20110225
  3. PARACETAMOL (PARACETAMOL) [Concomitant]
  4. APREPITANT [Suspect]
     Dosage: INTRAVENOUS
     Route: 042
     Dates: start: 20110225, end: 20110225
  5. CISPLATIN [Suspect]
     Dosage: INTRAVENOUS
     Route: 042
     Dates: start: 20101221, end: 20110225
  6. ONDANSETRON [Suspect]
     Dosage: 8 MG, ORAL
     Route: 048
  7. PEMETREXED [Suspect]
     Dosage: INTRAVENOUS
     Route: 042
     Dates: start: 20101221, end: 20110225
  8. MORPHINE SULFATE [Suspect]
     Dosage: 30 MG, ORAL
     Route: 048

REACTIONS (3)
  - LUNG CANCER METASTATIC [None]
  - LARGE INTESTINE PERFORATION [None]
  - PERITONITIS [None]
